FAERS Safety Report 7760927-X (Version None)
Quarter: 2011Q3

REPORT INFORMATION
  Report Type: 
  Country: None (occurrence: None)
  Receive Date: 20110919
  Receipt Date: 20110419
  Transmission Date: 20111222
  Serious: Yes (Other)
  Sender: FDA-Public Use
  Company Number: PHHY2011US32825

PATIENT
  Age: 67 Year
  Sex: Female

DRUGS (10)
  1. TOPIRAMATE [Concomitant]
     Dosage: 175 MG, UNK
  2. PHENYTOIN [Interacting]
     Indication: CONVULSION
     Dosage: 460 MG/DAY (200 MG IN THE MORNING AND 260 MG IN THE EVENING
  3. OXCARBAZEPINE [Interacting]
     Dosage: 900 MG DAY 12
  4. OXCARBAZEPINE [Interacting]
     Dosage: 750 MG, DAY 13
  5. QUETIAPINE [Concomitant]
     Indication: BIPOLAR I DISORDER
  6. OXCARBAZEPINE [Suspect]
     Indication: BIPOLAR I DISORDER
     Dosage: 150 MG, BID
  7. OXCARBAZEPINE [Interacting]
     Dosage: 600 MG, DAY 11
  8. CLONAZEPAM [Concomitant]
     Indication: ANXIETY
     Dosage: 1 MG, TID
  9. TOPIRAMATE [Concomitant]
     Indication: CONVULSION
     Dosage: 300 MG/DAY (100 MG IN THE MORNING AND 200 MG IN THE EVENING)
  10. OXCARBAZEPINE [Interacting]
     Dosage: 450 MG, DAY 7 AND 9

REACTIONS (4)
  - TOXICITY TO VARIOUS AGENTS [None]
  - ATAXIA [None]
  - FALL [None]
  - DRUG INTERACTION [None]
